FAERS Safety Report 4828645-5 (Version None)
Quarter: 2005Q4

REPORT INFORMATION
  Report Type: 
  Country: None (occurrence: None)
  Receive Date: 20051014
  Receipt Date: 20050624
  Transmission Date: 20060501
  Serious: No
  Sender: FDA-Public Use
  Company Number: 2005SP000895

PATIENT
  Age: 89 Year
  Sex: Female
  Weight: 54.4316 kg

DRUGS (6)
  1. LUNESTA [Suspect]
     Dosage: 2 MG; HS; ORAL, 2 MG; HS; ORAL
     Route: 048
     Dates: start: 20050521, end: 20050601
  2. LUNESTA [Suspect]
     Dosage: 2 MG; HS; ORAL, 2 MG; HS; ORAL
     Route: 048
     Dates: start: 20050601, end: 20050601
  3. DEXTROL [Concomitant]
  4. NIFEDICAL [Concomitant]
  5. SYNTHROID [Concomitant]
  6. AMBIEN [Concomitant]

REACTIONS (2)
  - DRUG INEFFECTIVE [None]
  - INSOMNIA [None]
